FAERS Safety Report 23545292 (Version 1)
Quarter: 2024Q1

REPORT INFORMATION
  Report Type: Spontaneous
  Country: US (occurrence: None)
  Receive Date: 20240217
  Receipt Date: 20240217
  Transmission Date: 20240410
  Serious: Yes (unspecified)
  Sender: FDA-Public Use
  Company Number: None

PATIENT
  Age: 36 Year
  Sex: Female
  Weight: 66.22 kg

DRUGS (4)
  1. MIRENA [Suspect]
     Active Substance: LEVONORGESTREL
  2. ACEBUTOLOL [Concomitant]
  3. MYDAYIS [Concomitant]
     Active Substance: AMPHETAMINE ASPARTATE\AMPHETAMINE SULFATE\DEXTROAMPHETAMINE SACCHARATE\DEXTROAMPHETAMINE SULFATE
  4. Spironlactone [Concomitant]

REACTIONS (4)
  - Complication associated with device [None]
  - Panic attack [None]
  - Loss of personal independence in daily activities [None]
  - Post-traumatic stress disorder [None]

NARRATIVE: CASE EVENT DATE: 20231120
